FAERS Safety Report 9768397 (Version 1)
Quarter: 2013Q4

REPORT INFORMATION
  Report Type: Spontaneous
  Country: AU (occurrence: AU)
  Receive Date: 20131217
  Receipt Date: 20131217
  Transmission Date: 20140711
  Serious: Yes (Hospitalization)
  Sender: FDA-Public Use
  Company Number: AU-MYLANLABS-2013S1027465

PATIENT
  Age: 57 Year
  Sex: Female

DRUGS (4)
  1. METHOTREXATE [Suspect]
     Indication: RHEUMATOID ARTHRITIS
     Dosage: ADR ONSET FOLLOWING 20MG DOSE
     Route: 065
  2. LEFLUNOMIDE [Suspect]
     Route: 065
  3. SULFASALAZINE [Suspect]
     Route: 065
  4. PREDNISONE [Concomitant]
     Indication: RHEUMATOID ARTHRITIS
     Dosage: 15MG DAILY
     Route: 065

REACTIONS (4)
  - Urticaria [Unknown]
  - Angioedema [Unknown]
  - Throat tightness [Unknown]
  - Abdominal pain [Unknown]
